FAERS Safety Report 10216272 (Version 1)
Quarter: 2014Q2

REPORT INFORMATION
  Report Type: Spontaneous
  Country: US (occurrence: None)
  Receive Date: 20140602
  Receipt Date: 20140602
  Transmission Date: 20141212
  Serious: Yes (Life-Threatening, Hospitalization)
  Sender: FDA-Public Use
  Company Number: 2364472

PATIENT
  Age: 49 Year
  Sex: Male
  Weight: 105 kg

DRUGS (1)
  1. LABETALOL HYDROCHLORIDE [Suspect]
     Indication: HYPERTENSION
     Route: 042
     Dates: start: 20140516, end: 20140516

REACTIONS (8)
  - Product quality issue [None]
  - Blood pressure decreased [None]
  - Heart rate decreased [None]
  - Pulse abnormal [None]
  - Sinus tachycardia [None]
  - Ventricular tachycardia [None]
  - Cardio-respiratory arrest [None]
  - Product physical issue [None]
